FAERS Safety Report 11060376 (Version 3)
Quarter: 2015Q2

REPORT INFORMATION
  Report Type: Spontaneous
  Country: JP (occurrence: JP)
  Receive Date: 20150423
  Receipt Date: 20150528
  Transmission Date: 20150821
  Serious: Yes (Disabling, Other)
  Sender: FDA-Public Use
  Company Number: JP-ELI_LILLY_AND_COMPANY-JP201504000001

PATIENT
  Age: 71 Year
  Sex: Male
  Weight: 56 kg

DRUGS (11)
  1. PROCYLIN [Concomitant]
     Active Substance: BERAPROST SODIUM
     Dosage: UNK
  2. SOLDEM 3A [Concomitant]
     Active Substance: CARBOHYDRATES\POTASSIUM CHLORIDE\SODIUM CHLORIDE\SODIUM LACTATE
     Dosage: 500 ML, OTHER
     Route: 042
     Dates: start: 20150316, end: 20150323
  3. BAKTAR [Concomitant]
     Active Substance: SULFAMETHOXAZOLE\TRIMETHOPRIM
     Dosage: 1 G, EACH MORNING
     Route: 048
     Dates: start: 20150304
  4. PREDONINE [Concomitant]
     Active Substance: PREDNISOLONE\PREDNISOLONE ACETATE\PREDNISOLONE SODIUM SUCCINATE
     Dosage: 20 MG, BID
     Route: 048
     Dates: start: 20150313, end: 20150325
  5. MECOBALAMIN [Concomitant]
     Active Substance: METHYLCOBALAMIN
     Dosage: UNK
  6. GEMZAR [Suspect]
     Active Substance: GEMCITABINE HYDROCHLORIDE
     Indication: DIFFUSE LARGE B-CELL LYMPHOMA RECURRENT
     Dosage: 1.5 G, OTHER
     Route: 042
     Dates: start: 20150316, end: 20150323
  7. SEROTONE [Concomitant]
     Active Substance: AZASETRON HYDROCHLORIDE
     Dosage: 1 DF, OTHER
     Route: 042
     Dates: start: 20150316, end: 20150323
  8. MEYLON [Concomitant]
     Active Substance: SODIUM BICARBONATE
     Dosage: 40 ML, OTHER
     Route: 042
     Dates: start: 20150316, end: 20150323
  9. AZILVA [Concomitant]
     Active Substance: AZILSARTAN KAMEDOXOMIL
     Dosage: UNK
     Route: 048
  10. ITRIZOLE [Concomitant]
     Active Substance: ITRACONAZOLE
     Dosage: 20 ML, QD
     Route: 048
     Dates: start: 20150304, end: 20150406
  11. BAYASPIRIN [Concomitant]
     Active Substance: ASPIRIN
     Dosage: UNK

REACTIONS (3)
  - Fall [Recovered/Resolved]
  - Rib fracture [Unknown]
  - Leukoencephalopathy [Recovered/Resolved with Sequelae]

NARRATIVE: CASE EVENT DATE: 20150317
